FAERS Safety Report 4919521-8 (Version None)
Quarter: 2006Q1

REPORT INFORMATION
  Report Type: 
  Country: None (occurrence: None)
  Receive Date: 20060216
  Receipt Date: 20060203
  Transmission Date: 20060701
  Serious: Yes (Disabling)
  Sender: FDA-Public Use
  Company Number: 221840

PATIENT
  Sex: Male

DRUGS (2)
  1. AVASTIN [Suspect]
     Indication: MACULAR DEGENERATION
     Dosage: 1/MONTH
     Dates: start: 20051201
  2. CARDIAC MEDICATION NOS (CARDIAC MEDICATION NOS) [Concomitant]

REACTIONS (3)
  - DIFFICULTY IN WALKING [None]
  - GAIT DISTURBANCE [None]
  - WALKING AID USER [None]
